FAERS Safety Report 6156772-1 (Version None)
Quarter: 2009Q2

REPORT INFORMATION
  Report Type: 
  Country: None (occurrence: None)
  Receive Date: 20090416
  Receipt Date: 20090407
  Transmission Date: 20091009
  Serious: Yes (Other)
  Sender: FDA-Public Use
  Company Number: PHHY2009BR13497

PATIENT
  Sex: Female
  Weight: 50 kg

DRUGS (6)
  1. TRILEPTAL [Suspect]
     Indication: DEPRESSION
     Dosage: 300 MG, BID
     Route: 048
  2. YASMIN [Interacting]
     Indication: CONTRACEPTION
     Dosage: 1 TABLET DAILY
     Route: 048
     Dates: start: 20070101
  3. CITALOPRAM HYDROBROMIDE [Concomitant]
     Indication: DEPRESSION
     Dosage: 20 MG, TID
     Route: 048
  4. VENLAX [Concomitant]
     Indication: DEPRESSION
     Dosage: 20 MG, QD
     Route: 048
  5. SERTRALINE HYDROCHLORIDE [Concomitant]
     Indication: DEPRESSION
     Dosage: 1 TABLET DAILY
     Route: 048
     Dates: start: 20090331
  6. LANSOPRAZOLE [Concomitant]
     Dosage: 30 MG, QD
     Dates: start: 20090201

REACTIONS (5)
  - DEPRESSION [None]
  - DYSMENORRHOEA [None]
  - MENORRHAGIA [None]
  - MENSTRUATION IRREGULAR [None]
  - RESTLESSNESS [None]
